FAERS Safety Report 5376429-4 (Version None)
Quarter: 2007Q3

REPORT INFORMATION
  Report Type: 
  Country: None (occurrence: None)
  Receive Date: 20070702
  Receipt Date: 20070622
  Transmission Date: 20080115
  Serious: Yes (Hospitalization)
  Sender: FDA-Public Use
  Company Number: FR-PFIZER INC-2007051907

PATIENT
  Age: 84 Year
  Sex: Female
  Weight: 39 kg

DRUGS (7)
  1. AMLODIPINE [Suspect]
     Dosage: TEXT:1DF DAILY
     Route: 048
  2. ATORVASTATIN CALCIUM [Suspect]
     Route: 048
  3. COUMADIN [Suspect]
     Dosage: TEXT:1DF
     Route: 048
  4. LORAZEPAM [Suspect]
     Dosage: TEXT:1DF DAILY
     Route: 048
  5. ATHYMIL [Suspect]
     Route: 048
  6. LAMICTAL [Suspect]
     Dosage: TEXT:1DF TID 3DF
     Route: 048
  7. OMEPRAZOLE [Concomitant]

REACTIONS (1)
  - HEPATIC ENZYME INCREASED [None]
